FAERS Safety Report 8330786-5 (Version None)
Quarter: 2012Q2

REPORT INFORMATION
  Report Type: 
  Country: None (occurrence: None)
  Receive Date: 20120502
  Receipt Date: 20120411
  Transmission Date: 20120825
  Serious: No
  Sender: FDA-Public Use
  Company Number: US-AMGEN-USASP2012023012

PATIENT
  Age: 50 Year
  Sex: Female

DRUGS (1)
  1. ENBREL [Suspect]
     Indication: RHEUMATOID ARTHRITIS
     Dosage: 50 MG, QWK
     Dates: start: 20000601

REACTIONS (12)
  - VITREOUS FLOATERS [None]
  - ABDOMINAL TENDERNESS [None]
  - BLOOD PRESSURE INCREASED [None]
  - STOMACH MASS [None]
  - EPISTAXIS [None]
  - PHOTOPSIA [None]
  - OROPHARYNGEAL PAIN [None]
  - UPPER-AIRWAY COUGH SYNDROME [None]
  - UPPER RESPIRATORY TRACT INFECTION [None]
  - SINUS DISORDER [None]
  - ABDOMINAL MASS [None]
  - RHEUMATOID ARTHRITIS [None]
